FAERS Safety Report 20644030 (Version 3)
Quarter: 2022Q2

REPORT INFORMATION
  Report Type: Report from Study
  Country: US (occurrence: US)
  Receive Date: 20220328
  Receipt Date: 20220521
  Transmission Date: 20220721
  Serious: Yes (Hospitalization, Other)
  Sender: FDA-Public Use
  Company Number: US-TAKEDA-2022TUS018765

PATIENT
  Age: 32 Year
  Sex: Female
  Weight: 56.689 kg

DRUGS (31)
  1. HUMAN IMMUNOGLOBULIN G [Suspect]
     Active Substance: HUMAN IMMUNOGLOBULIN G
     Indication: Congenital hypogammaglobulinaemia
     Dosage: 30 GRAM, Q4WEEKS
     Route: 042
     Dates: start: 20220216
  2. HUMAN IMMUNOGLOBULIN G [Suspect]
     Active Substance: HUMAN IMMUNOGLOBULIN G
     Indication: Crohn^s disease
     Dosage: 20 GRAM, Q4WEEKS
     Route: 042
     Dates: start: 20220216
  3. HUMAN IMMUNOGLOBULIN G [Suspect]
     Active Substance: HUMAN IMMUNOGLOBULIN G
     Indication: Selective IgG subclass deficiency
     Dosage: 25 GRAM, Q4WEEKS
     Route: 042
     Dates: start: 20220216
  4. ACETAMINOPHEN [Concomitant]
     Active Substance: ACETAMINOPHEN
  5. DIPHENHYDRAMINE [Concomitant]
     Active Substance: DIPHENHYDRAMINE
  6. HEPARIN [Concomitant]
     Active Substance: HEPARIN SODIUM
  7. SODIUM CHLORIDE [Concomitant]
     Active Substance: SODIUM CHLORIDE
  8. EPINEPHRINE [Concomitant]
     Active Substance: EPINEPHRINE
  9. Lmx [Concomitant]
  10. EMGALITY [Concomitant]
     Active Substance: GALCANEZUMAB-GNLM
  11. NUVARING [Concomitant]
     Active Substance: ETHINYL ESTRADIOL\ETONOGESTREL
  12. TRAMADOL [Concomitant]
     Active Substance: TRAMADOL
  13. PEPCID [Concomitant]
     Active Substance: FAMOTIDINE
  14. MONTELUKAST [Concomitant]
     Active Substance: MONTELUKAST SODIUM
  15. VITAMIN D2 [Concomitant]
     Active Substance: ERGOCALCIFEROL
  16. WELCHOL [Concomitant]
     Active Substance: COLESEVELAM HYDROCHLORIDE
  17. DIPHENHYDRAMINE HYDROCHLORIDE\LIDOCAINE HYDROCHLORIDE\NYSTATIN [Concomitant]
     Active Substance: DIPHENHYDRAMINE HYDROCHLORIDE\LIDOCAINE HYDROCHLORIDE\NYSTATIN
  18. ESOMEPRAZOLE [Concomitant]
     Active Substance: ESOMEPRAZOLE
  19. CYANOCOBALAMIN [Concomitant]
     Active Substance: CYANOCOBALAMIN
  20. DAPSONE [Concomitant]
     Active Substance: DAPSONE
  21. ZYRTEC [Concomitant]
     Active Substance: CETIRIZINE HYDROCHLORIDE
  22. BUDESONIDE [Concomitant]
     Active Substance: BUDESONIDE
  23. IMURAN [Concomitant]
     Active Substance: AZATHIOPRINE
  24. SODIUM CHLORIDE [Concomitant]
     Active Substance: SODIUM CHLORIDE
  25. CIMZIA [Concomitant]
     Active Substance: CERTOLIZUMAB PEGOL
  26. NURTEC ODT [Concomitant]
     Active Substance: RIMEGEPANT SULFATE
  27. ESOMEPRAZOLE MAGNESIUM [Concomitant]
     Active Substance: ESOMEPRAZOLE MAGNESIUM
     Route: 065
  28. EXCEDRIN [Concomitant]
     Active Substance: ACETAMINOPHEN\ASPIRIN\CAFFEINE
     Route: 065
  29. LIDOCAINE [Concomitant]
     Active Substance: LIDOCAINE
  30. VITAMIN D [Concomitant]
     Active Substance: VITAMIN D NOS
  31. LOMOTIL [Concomitant]
     Active Substance: ATROPINE SULFATE\DIPHENOXYLATE HYDROCHLORIDE

REACTIONS (8)
  - Viral infection [Unknown]
  - Syncope [Unknown]
  - Fall [Unknown]
  - Gastroenteritis viral [Unknown]
  - Bursitis [Unknown]
  - Bone cyst [Unknown]
  - Headache [Recovered/Resolved]
  - Off label use [Unknown]

NARRATIVE: CASE EVENT DATE: 20220419
